FAERS Safety Report 16728457 (Version 1)
Quarter: 2019Q3

REPORT INFORMATION
  Report Type: Report from Study
  Country: GB (occurrence: GB)
  Receive Date: 20190822
  Receipt Date: 20190822
  Transmission Date: 20191005
  Serious: Yes (Hospitalization)
  Sender: FDA-Public Use
  Company Number: GB-KARYOPHARM-2016KPT000038

PATIENT
  Age: 51 Year
  Sex: Male
  Weight: 93 kg

DRUGS (20)
  1. FORTIJUICE [Concomitant]
     Indication: PNEUMOCYSTIS JIROVECII PNEUMONIA
     Dosage: 200 ML, QD
     Route: 048
     Dates: start: 20151022
  2. RAMIPRIL. [Concomitant]
     Active Substance: RAMIPRIL
     Indication: ADVERSE EVENT
     Dosage: 1.25 MG, QD
     Route: 048
     Dates: start: 201601
  3. NYSTATIN. [Concomitant]
     Active Substance: NYSTATIN
     Indication: PRODUCT USED FOR UNKNOWN INDICATION
     Dosage: 100000 IU, QID
     Route: 048
  4. GRANULOCYTE COLONY STIMULATING FACTOR [Concomitant]
     Active Substance: GRANULOCYTE COLONY-STIMULATING FACTOR NOS
     Indication: NEUTROPENIA
     Dosage: 480 MG, TWICE WEEKLY
     Route: 058
     Dates: start: 20150803
  5. AZITHROMYCIN ANHYDROUS. [Concomitant]
     Active Substance: AZITHROMYCIN ANHYDROUS
     Indication: PNEUMOCYSTIS JIROVECII PNEUMONIA
     Dosage: 250 MG, QD
     Route: 048
     Dates: start: 20151115
  6. DALTEPARIN [Concomitant]
     Active Substance: DALTEPARIN
     Indication: ADVERSE EVENT
     Dosage: 12500 UNITS, QD
     Route: 058
     Dates: start: 20151130
  7. BISOPROLOL [Concomitant]
     Active Substance: BISOPROLOL
     Indication: ADVERSE EVENT
     Dosage: 1.25 MG, QD
     Route: 048
     Dates: start: 20151216
  8. COCODAMOL [Concomitant]
     Active Substance: ACETAMINOPHEN\CODEINE PHOSPHATE
     Indication: ABDOMINAL PAIN
     Dosage: 60/1000 MG, QD PRN
     Route: 048
     Dates: start: 201506
  9. CALCIUM W/COLECALCIFEROL [Concomitant]
     Active Substance: CALCIUM\CHOLECALCIFEROL
     Indication: PNEUMOCYSTIS JIROVECII PNEUMONIA
     Dosage: 500 GM / 400 MG, BID
     Route: 048
     Dates: start: 20151022
  10. ONDANSETRON [Concomitant]
     Active Substance: ONDANSETRON
     Indication: PNEUMOCYSTIS JIROVECII PNEUMONIA
     Dosage: 8 MG, BID
     Route: 048
     Dates: start: 20151022
  11. CODEINE PHOSPHATE [Concomitant]
     Active Substance: CODEINE PHOSPHATE
     Indication: PNEUMOCYSTIS JIROVECII PNEUMONIA
     Dosage: 60 MG, PRN
     Route: 048
     Dates: start: 20151022
  12. BENZYDAMINE HYDROCHLORIDE [Concomitant]
     Active Substance: BENZYDAMINE HYDROCHLORIDE
     Indication: PRODUCT USED FOR UNKNOWN INDICATION
     Dosage: 10 ML, QID
     Route: 048
  13. PARACETAMOL [Concomitant]
     Active Substance: ACETAMINOPHEN
     Indication: PNEUMOCYSTIS JIROVECII PNEUMONIA
     Dosage: 1000 MG, UNK
     Route: 048
     Dates: start: 20151022
  14. CALCICHEW [Concomitant]
     Active Substance: CALCIUM CARBONATE
     Indication: PROPHYLAXIS
     Dosage: 500 MG, UNK
     Route: 048
     Dates: start: 201510
  15. FLUCONAZOLE. [Concomitant]
     Active Substance: FLUCONAZOLE
     Indication: PRODUCT USED FOR UNKNOWN INDICATION
     Dosage: 50 MG, QD
     Route: 048
  16. SELINEXOR [Suspect]
     Active Substance: SELINEXOR
     Indication: DIFFUSE LARGE B-CELL LYMPHOMA
     Dosage: 100 MG, TWICE WEEKLY
     Route: 048
     Dates: start: 20150728, end: 20160201
  17. ZOPICLONE [Concomitant]
     Active Substance: ZOPICLONE
     Indication: INSOMNIA
     Dosage: 7.5 MG, QHS PRN
     Route: 048
     Dates: start: 2014
  18. METOCLOPRAMIDE. [Concomitant]
     Active Substance: METOCLOPRAMIDE
     Indication: PROPHYLAXIS
     Dosage: 10 MG, UNK
     Route: 048
     Dates: start: 20150728
  19. CYCLIZINE [Concomitant]
     Active Substance: CYCLIZINE
     Indication: ADVERSE EVENT
     Dosage: 50 MG, TID PRN
     Route: 048
     Dates: start: 2015
  20. LANSOPRAZOLE. [Concomitant]
     Active Substance: LANSOPRAZOLE
     Indication: PROPHYLAXIS
     Dosage: 30 MG, UNK
     Route: 048
     Dates: start: 201410

REACTIONS (1)
  - Influenza [Recovered/Resolved]

NARRATIVE: CASE EVENT DATE: 20160201
